FAERS Safety Report 20862037 (Version 1)
Quarter: 2022Q2

REPORT INFORMATION
  Report Type: Report from Study
  Country: IN (occurrence: None)
  Receive Date: 20220523
  Receipt Date: 20220523
  Transmission Date: 20220720
  Serious: Yes (Death)
  Sender: FDA-Public Use
  Company Number: 2022A193385

PATIENT
  Age: 85 Year
  Sex: Female
  Weight: 52 kg

DRUGS (1)
  1. IMFINZI [Suspect]
     Active Substance: DURVALUMAB
     Indication: Small cell lung cancer extensive stage
     Route: 042
     Dates: start: 20220201, end: 20220410

REACTIONS (1)
  - Death [Fatal]

NARRATIVE: CASE EVENT DATE: 20220201
